FAERS Safety Report 8025687-6 (Version None)
Quarter: 2012Q1

REPORT INFORMATION
  Report Type: 
  Country: None (occurrence: None)
  Receive Date: 20120105
  Receipt Date: 20111228
  Transmission Date: 20120608
  Serious: Yes (Life-Threatening, Hospitalization)
  Sender: FDA-Public Use
  Company Number: JP-ASTRAZENECA-2011SE78306

PATIENT
  Sex: Female
  Weight: 60 kg

DRUGS (9)
  1. CANDESARTAN CILEXETIL [Suspect]
     Indication: PRODUCT USED FOR UNKNOWN INDICATION
     Route: 048
  2. ALLERGOSPASMIN [Concomitant]
     Dosage: SODIUM CROMOGLICATE 1 MG/REPROTEROL-HCL 0,5 MG
     Route: 055
  3. CANDESARTAN CILEXETIL [Suspect]
     Route: 048
     Dates: start: 20111213, end: 20111216
  4. CANDESARTAN CILEXETIL [Suspect]
     Route: 048
  5. PARACETAMOL [Concomitant]
     Route: 048
  6. LEVOTHYROXINE SODIUM [Concomitant]
     Route: 048
  7. CANDESARTAN CILEXETIL [Suspect]
     Route: 048
     Dates: start: 20111212, end: 20111212
  8. CANDESARTAN CILEXETIL [Suspect]
     Route: 048
     Dates: start: 20111221, end: 20111221
  9. ACETYLSALICYLIC ACID SRT [Concomitant]
     Route: 048

REACTIONS (10)
  - BLINDNESS [None]
  - SENSATION OF PRESSURE [None]
  - MICTURITION URGENCY [None]
  - INSOMNIA [None]
  - HEART RATE INCREASED [None]
  - FEAR OF DEATH [None]
  - MALAISE [None]
  - VISUAL IMPAIRMENT [None]
  - PARAESTHESIA [None]
  - HEADACHE [None]
